FAERS Safety Report 7794114-6 (Version None)
Quarter: 2011Q4

REPORT INFORMATION
  Report Type: 
  Country: None (occurrence: None)
  Receive Date: 20111004
  Receipt Date: 20110929
  Transmission Date: 20120403
  Serious: Yes (Death, Other)
  Sender: FDA-Public Use
  Company Number: RU-GENZYME-FLUD-1001372

PATIENT
  Sex: Male
  Weight: 72 kg

DRUGS (7)
  1. FLUDARA [Suspect]
     Dosage: 5 TABS PER DAY
     Route: 065
     Dates: start: 20100815, end: 20100817
  2. FLUDARA [Suspect]
     Dosage: 5 TABS PER DAY
     Route: 065
     Dates: start: 20100713, end: 20100715
  3. FLUDARA [Suspect]
     Indication: CHRONIC LYMPHOCYTIC LEUKAEMIA
     Dosage: 5 TABS PER DAY
     Route: 048
     Dates: start: 20110223, end: 20110225
  4. FLUDARA [Suspect]
     Dosage: 5 TABS PER DAY
     Route: 065
     Dates: start: 20100930, end: 20101002
  5. FLUDARA [Suspect]
     Dosage: 5 TABS PER DAY
     Route: 065
     Dates: start: 20110426, end: 20110426
  6. FLUDARA [Suspect]
     Dosage: 5 TABS PER DAY
     Route: 065
     Dates: start: 20100602, end: 20100604
  7. FLUDARA [Suspect]
     Dosage: 5 TABS PER DAY
     Route: 065
     Dates: start: 20101113, end: 20101115

REACTIONS (4)
  - RASH [None]
  - PYREXIA [None]
  - DEATH [None]
  - RASH GENERALISED [None]
